FAERS Safety Report 19830064 (Version 1)
Quarter: 2021Q3

REPORT INFORMATION
  Report Type: Spontaneous
  Country: US (occurrence: US)
  Receive Date: 20210914
  Receipt Date: 20210914
  Transmission Date: 20211014
  Serious: Yes (Life-Threatening)
  Sender: FDA-Public Use
  Company Number: None

PATIENT
  Age: 24 Year
  Sex: Male
  Weight: 115.2 kg

DRUGS (5)
  1. WELLBUTRIN [Concomitant]
     Active Substance: BUPROPION HYDROCHLORIDE
     Dates: start: 20200309
  2. ACTEMRA [Suspect]
     Active Substance: TOCILIZUMAB
     Indication: RHEUMATOID ARTHRITIS
     Dosage: ?          OTHER FREQUENCY:ONCE WEEKLY;?
     Route: 058
     Dates: start: 20200403, end: 20210802
  3. INFLECTRA [Suspect]
     Active Substance: INFLIXIMAB-DYYB
     Indication: RHEUMATOID ARTHRITIS
     Dosage: ?          OTHER FREQUENCY:EVERY 4 WEEKS;OTHER ROUTE:INFUSION?
  4. ARAVA [Concomitant]
     Active Substance: LEFLUNOMIDE
     Dates: start: 20200305
  5. SULFASALAZINE. [Concomitant]
     Active Substance: SULFASALAZINE
     Dates: start: 20200626

REACTIONS (1)
  - Hodgkin^s disease [None]

NARRATIVE: CASE EVENT DATE: 20210902
